APPROVED DRUG PRODUCT: NYSTATIN
Active Ingredient: NYSTATIN
Strength: 100%
Dosage Form/Route: POWDER;ORAL
Application: A062613 | Product #001
Applicant: PADDOCK LABORATORIES LLC
Approved: Nov 26, 1985 | RLD: No | RS: No | Type: DISCN